FAERS Safety Report 7822006-2 (Version None)
Quarter: 2011Q4

REPORT INFORMATION
  Report Type: 
  Country: None (occurrence: None)
  Receive Date: 20111018
  Receipt Date: 20111006
  Transmission Date: 20120403
  Serious: Yes (Other)
  Sender: FDA-Public Use
  Company Number: PHHY2011DE89196

PATIENT
  Age: 75 Year
  Sex: Male

DRUGS (1)
  1. VALSARTAN [Suspect]
     Dosage: 160 MG, UNK
     Route: 048

REACTIONS (2)
  - CORNEAL DYSTROPHY [None]
  - CORNEAL OEDEMA [None]
